FAERS Safety Report 20834068 (Version 1)
Quarter: 2022Q2

REPORT INFORMATION
  Report Type: 
  Country: None (occurrence: None)
  Receive Date: 20220516
  Receipt Date: 20220516
  Transmission Date: 20220720
  Serious: No
  Sender: FDA-Public Use
  Company Number: US-ROCHE-3089993

PATIENT
  Age: 11 Year

DRUGS (1)
  1. HEMLIBRA [Suspect]
     Active Substance: EMICIZUMAB-KXWH
     Dates: start: 202110

REACTIONS (1)
  - Haematoma [None]

NARRATIVE: CASE EVENT DATE: 20220419
